FAERS Safety Report 7905793-4 (Version None)
Quarter: 2011Q4

REPORT INFORMATION
  Report Type: 
  Country: None (occurrence: None)
  Receive Date: 20111110
  Receipt Date: 20111031
  Transmission Date: 20120403
  Serious: Yes (Hospitalization, Other)
  Sender: FDA-Public Use
  Company Number: US-JNJFOC-20111100494

PATIENT
  Sex: Male
  Weight: 58.97 kg

DRUGS (6)
  1. CONCERTA [Suspect]
     Indication: DEPRESSION
     Route: 048
     Dates: end: 20110912
  2. CONCERTA [Suspect]
     Route: 048
     Dates: start: 20111013
  3. LITHIUM [Concomitant]
     Indication: ATTENTION DEFICIT/HYPERACTIVITY DISORDER
     Route: 048
     Dates: start: 20111001
  4. LITHIUM [Concomitant]
     Indication: DEPRESSION
     Route: 048
     Dates: start: 20111001
  5. CONCERTA [Suspect]
     Indication: ATTENTION DEFICIT/HYPERACTIVITY DISORDER
     Route: 048
     Dates: end: 20110912
  6. CONCERTA [Suspect]
     Route: 048
     Dates: start: 20111013

REACTIONS (12)
  - HOSTILITY [None]
  - BIPOLAR DISORDER [None]
  - MENTAL STATUS CHANGES [None]
  - EXPRESSIVE LANGUAGE DISORDER [None]
  - MENTAL DISORDER [None]
  - ABNORMAL BEHAVIOUR [None]
  - SUICIDAL IDEATION [None]
  - PSYCHOTIC DISORDER [None]
  - DEPRESSION [None]
  - AGGRESSION [None]
  - TENSION [None]
  - IRRITABILITY [None]
